FAERS Safety Report 6000525-1 (Version None)
Quarter: 2008Q4

REPORT INFORMATION
  Report Type: 
  Country: None (occurrence: None)
  Receive Date: 20081215
  Receipt Date: 20080221
  Transmission Date: 20090506
  Serious: No
  Sender: FDA-Public Use
  Company Number: US-BAYER-200810475BCC

PATIENT
  Age: 83 Year
  Sex: Male
  Weight: 78 kg

DRUGS (10)
  1. ALEVE [Suspect]
     Indication: ARTHRITIS
  2. BAYER BACK AND BODY [Suspect]
     Indication: ANALGESIA
     Dosage: TOTAL DAILY DOSE: 2 DF
     Route: 048
     Dates: start: 20080107, end: 20080109
  3. METOPROLOL [Concomitant]
  4. DOXAZOSIN MESYLATE [Concomitant]
  5. FINASTERIDE [Concomitant]
  6. DARVOCET [Concomitant]
  7. FLOMAX [Concomitant]
  8. EXCEDRIN [Concomitant]
  9. HIGH BLOOD PRESSURE MEDICATION [Concomitant]
  10. ONE A DAY ALL DAY ENERGY [Concomitant]

REACTIONS (2)
  - CONSTIPATION [None]
  - CONTUSION [None]
